FAERS Safety Report 23960649 (Version 1)
Quarter: 2024Q2

REPORT INFORMATION
  Report Type: Spontaneous
  Country: US (occurrence: US)
  Receive Date: 20240611
  Receipt Date: 20240611
  Transmission Date: 20240715
  Serious: Yes (Death)
  Sender: FDA-Public Use
  Company Number: US-TILDE SCIENCES LLC-2024TIL00009

PATIENT
  Sex: Male

DRUGS (7)
  1. DARAPRIM [Suspect]
     Active Substance: PYRIMETHAMINE
     Indication: Toxoplasmosis
     Dosage: 3 TABLETS, 1X/DAY
     Dates: start: 20240410
  2. SEMGLEE [INSULIN GLARGINE YFGN] [Concomitant]
     Dosage: 100 U/ML, 2X/DAY
  3. LEUCOVORIN [Concomitant]
     Active Substance: LEUCOVORIN\LEUCOVORIN CALCIUM
     Dosage: 25 MG, 1X/DAY
  4. CELLCEPT [Concomitant]
     Active Substance: MYCOPHENOLATE MOFETIL
     Dosage: 500 MG, 2X/DAY
  5. PREDNISONE [Concomitant]
     Active Substance: PREDNISONE
     Dosage: 5 MG, 1X/DAY WITH BREAKFAST
  6. SULFADIAZINE [Concomitant]
     Active Substance: SULFADIAZINE
     Dosage: 500 MG, 2X/DAY
  7. TAMSULOSIN [Concomitant]
     Active Substance: TAMSULOSIN
     Dosage: 0.4 MG, 1X/DAY EVERY NIGHT

REACTIONS (1)
  - Death [Fatal]

NARRATIVE: CASE EVENT DATE: 20240515
